FAERS Safety Report 4851017-4 (Version None)
Quarter: 2005Q4

REPORT INFORMATION
  Report Type: 
  Country: None (occurrence: None)
  Receive Date: 20051130
  Receipt Date: 20051012
  Transmission Date: 20060501
  Serious: No
  Sender: FDA-Public Use
  Company Number: FABR-11275

PATIENT
  Age: 25 Year
  Sex: Female
  Weight: 65.7716 kg

DRUGS (2)
  1. FABRAZYME [Suspect]
     Indication: FABRY'S DISEASE
     Dosage: 65 MG Q2WKS IV
     Route: 042
     Dates: start: 20050928
  2. ZOLOFT [Concomitant]

REACTIONS (1)
  - INFLUENZA LIKE ILLNESS [None]
